APPROVED DRUG PRODUCT: RETIN-A
Active Ingredient: TRETINOIN
Strength: 0.025%
Dosage Form/Route: GEL;TOPICAL
Application: N017579 | Product #002 | TE Code: AB
Applicant: VALEANT INTERNATIONAL BARBADOS SRL
Approved: Approved Prior to Jan 1, 1982 | RLD: Yes | RS: Yes | Type: RX